FAERS Safety Report 5129942-9 (Version None)
Quarter: 2006Q4

REPORT INFORMATION
  Report Type: 
  Country: None (occurrence: None)
  Receive Date: 20061013
  Receipt Date: 20060925
  Transmission Date: 20070319
  Serious: Yes (Hospitalization)
  Sender: FDA-Public Use
  Company Number: DK200609006251

PATIENT
  Age: 79 Year
  Sex: Female
  Weight: 58 kg

DRUGS (5)
  1. TERIPARATIDE (TERIPARATIDE)PEN, DISPOSABLE [Suspect]
     Indication: OSTEOPOROSIS
     Dosage: 20 UG DAILY (1/D), SUBCUTANEOUS
     Route: 058
     Dates: start: 20040919, end: 20050901
  2. FORTEO [Concomitant]
  3. CITALOPRAM HYDROBROMIDE [Concomitant]
  4. CALCIUM W/VITAMIN D NOS [Concomitant]
  5. BROMAM (BROMAZEPAM) [Concomitant]

REACTIONS (1)
  - BREAST CANCER FEMALE [None]
